FAERS Safety Report 4672761-8 (Version None)
Quarter: 2005Q2

REPORT INFORMATION
  Report Type: 
  Country: None (occurrence: None)
  Receive Date: 20050523
  Receipt Date: 20050510
  Transmission Date: 20051028
  Serious: Yes (Other)
  Sender: FDA-Public Use
  Company Number: 2005073219

PATIENT
  Age: 44 Year
  Sex: Female

DRUGS (2)
  1. GENOTROPIN [Suspect]
     Indication: OFF LABEL USE
     Dosage: 0.3 MG (5.3 MG, DAILY)
     Dates: start: 20050216
  2. HYDROCORTISONE ACETATE (HYDROCORTISONE) [Concomitant]

REACTIONS (5)
  - ADRENAL INSUFFICIENCY [None]
  - DRY SKIN [None]
  - FATIGUE [None]
  - NECK MASS [None]
  - RASH VESICULAR [None]
